FAERS Safety Report 9448890 (Version 1)
Quarter: 2013Q3

REPORT INFORMATION
  Report Type: Spontaneous
  Country: CO (occurrence: None)
  Receive Date: 20130806
  Receipt Date: 20130806
  Transmission Date: 20140515
  Serious: Yes (Other)
  Sender: FDA-Public Use
  Company Number: CO-20130019

PATIENT
  Age: 21 Year
  Sex: Female

DRUGS (1)
  1. DOTAREM [Suspect]
     Indication: NUCLEAR MAGNETIC RESONANCE IMAGING BRAIN
     Dosage: (15 ML, 1 IN 1 D) NOT OTHERWISE SPCIFIED
     Route: 042
     Dates: start: 20130626, end: 20130626

REACTIONS (1)
  - Erythema [None]
